FAERS Safety Report 16304566 (Version 2)
Quarter: 2020Q1

REPORT INFORMATION
  Report Type: Report from Study
  Country: FR (occurrence: FR)
  Receive Date: 20190513
  Receipt Date: 20200214
  Transmission Date: 20200409
  Serious: Yes (Hospitalization, Disabling, Congenital Anomaly, Other)
  Sender: FDA-Public Use
  Company Number: FR-AUROBINDO-08-AUR-06592

PATIENT

DRUGS (8)
  1. DIDANOSINE. [Suspect]
     Active Substance: DIDANOSINE
     Indication: HIV INFECTION
     Dosage: UNK
     Route: 064
  2. LOPINAVIR [Suspect]
     Active Substance: LOPINAVIR
     Indication: PRODUCT USED FOR UNKNOWN INDICATION
     Dosage: UNK
     Route: 064
  3. RITONAVIR. [Suspect]
     Active Substance: RITONAVIR
     Indication: PRODUCT USED FOR UNKNOWN INDICATION
     Dosage: UNK
     Route: 064
  4. LAMIVUDINE. [Suspect]
     Active Substance: LAMIVUDINE
     Indication: HIV INFECTION
     Dosage: UNK
     Route: 064
  5. NELFINAVIR [Suspect]
     Active Substance: NELFINAVIR
     Indication: HIV INFECTION
     Dosage: UNK
     Route: 064
  6. ZIDOVUDINE. [Suspect]
     Active Substance: ZIDOVUDINE
     Indication: HIV INFECTION
     Dosage: UNK
     Route: 064
  7. NEVIRAPINE. [Suspect]
     Active Substance: NEVIRAPINE
     Indication: PROPHYLAXIS AGAINST HIV INFECTION
     Dosage: UNK
     Route: 065
  8. NELFINAVIR [Suspect]
     Active Substance: NELFINAVIR
     Dosage: UNK
     Route: 064

REACTIONS (11)
  - Premature baby [Unknown]
  - Neoplasm malignant [Recovered/Resolved with Sequelae]
  - Optic nerve neoplasm [Unknown]
  - Foetal exposure during pregnancy [Recovered/Resolved]
  - Burkitt^s lymphoma [Unknown]
  - Anaemia neonatal [Recovered/Resolved with Sequelae]
  - Strabismus [Recovered/Resolved with Sequelae]
  - Retinoblastoma [Recovered/Resolved with Sequelae]
  - Benign neoplasm [Unknown]
  - Neutropenia neonatal [Recovered/Resolved with Sequelae]
  - Pinealoblastoma [Unknown]

NARRATIVE: CASE EVENT DATE: 20000601
